FAERS Safety Report 14151479 (Version 2)
Quarter: 2018Q1

REPORT INFORMATION
  Report Type: Spontaneous
  Country: US (occurrence: US)
  Receive Date: 20171102
  Receipt Date: 20180326
  Transmission Date: 20180508
  Serious: No
  Sender: FDA-Public Use
  Company Number: US-PFIZER INC-2017467909

PATIENT
  Age: 46 Year
  Sex: Female
  Weight: 82 kg

DRUGS (2)
  1. IBRANCE [Suspect]
     Active Substance: PALBOCICLIB
     Dosage: 125 MG, CYCLIC (DAYS 1 - 21 OF 28 DAYS)
     Route: 048
     Dates: start: 20171013
  2. IBRANCE [Suspect]
     Active Substance: PALBOCICLIB
     Indication: BREAST CANCER METASTATIC
     Dosage: 125 MG, CYCLIC ( D1-21 Q28 DAYS)
     Route: 048
     Dates: start: 20171013

REACTIONS (2)
  - Mouth swelling [Unknown]
  - White blood cell count decreased [Unknown]
